FAERS Safety Report 5684581-6 (Version None)
Quarter: 2008Q1

REPORT INFORMATION
  Report Type: 
  Country: None (occurrence: None)
  Receive Date: 20080328
  Receipt Date: 20070312
  Transmission Date: 20080703
  Serious: Yes (Death)
  Sender: FDA-Public Use
  Company Number: US-BRISTOL-MYERS SQUIBB COMPANY-13709902

PATIENT
  Sex: Male
  Weight: 96 kg

DRUGS (7)
  1. ERBITUX [Suspect]
     Indication: COLON CANCER METASTATIC
     Dates: start: 20060911
  2. MORPHINE SULFATE [Concomitant]
     Indication: PAIN
  3. PREDNISONE TAB [Concomitant]
  4. COMPAZINE [Concomitant]
  5. ATIVAN [Concomitant]
  6. PROCRIT [Concomitant]
  7. ZOMETA [Concomitant]

REACTIONS (2)
  - COLON CANCER METASTATIC [None]
  - MALIGNANT NEOPLASM PROGRESSION [None]
